FAERS Safety Report 8604983 (Version 2)
Quarter: 2013Q3

REPORT INFORMATION
  Report Type: Spontaneous
  Country: US (occurrence: US)
  Receive Date: 20120608
  Receipt Date: 20130809
  Transmission Date: 20140515
  Serious: Yes (Hospitalization, Disabling)
  Sender: FDA-Public Use
  Company Number: US-ASTRAZENECA-2012SE35038

PATIENT
  Age: 38 Year
  Sex: Female

DRUGS (9)
  1. NEXIUM [Suspect]
     Indication: ABDOMINAL DISCOMFORT
     Route: 048
  2. PRILOSEC [Suspect]
     Route: 048
     Dates: start: 1985
  3. LANSOPRAZOLE [Concomitant]
     Dates: start: 2005
  4. ZANTAC [Concomitant]
     Dates: start: 1988
  5. TAGAMET [Concomitant]
     Dates: start: 1985
  6. ROLAIDS [Concomitant]
  7. TUMS [Concomitant]
  8. GAVISCON [Concomitant]
  9. PEPTO BISMOL [Concomitant]
     Dosage: AS NEEDED

REACTIONS (15)
  - Haemorrhage [Unknown]
  - Gastric disorder [Unknown]
  - Dyspnoea [Unknown]
  - Cardiac disorder [Unknown]
  - Ulcer haemorrhage [Unknown]
  - Hypertension [Unknown]
  - Gastrooesophageal reflux disease [Unknown]
  - Fall [Unknown]
  - Osteoporosis [Unknown]
  - Glaucoma [Unknown]
  - Ligament sprain [Unknown]
  - Ankle fracture [Unknown]
  - Diabetes mellitus [Unknown]
  - Gait disturbance [Unknown]
  - Muscular weakness [Unknown]
